FAERS Safety Report 8224910-2 (Version None)
Quarter: 2012Q1

REPORT INFORMATION
  Report Type: 
  Country: None (occurrence: None)
  Receive Date: 20120319
  Receipt Date: 20120308
  Transmission Date: 20120608
  Serious: Yes (Hospitalization)
  Sender: FDA-Public Use
  Company Number: AUR-APL-2012-01293

PATIENT
  Age: 85 Year
  Sex: Female

DRUGS (1)
  1. MELOXICAM [Suspect]
     Indication: OSTEOARTHRITIS
     Dosage: 7.5 MG (7.5 MG, 1 IN 1 D), ORAL
     Route: 048
     Dates: start: 20050323

REACTIONS (3)
  - BARRETT'S OESOPHAGUS [None]
  - OESOPHAGITIS [None]
  - GASTRIC STENOSIS [None]
